FAERS Safety Report 7898886-1 (Version None)
Quarter: 2011Q4

REPORT INFORMATION
  Report Type: 
  Country: None (occurrence: None)
  Receive Date: 20111107
  Receipt Date: 20111025
  Transmission Date: 20120403
  Serious: Yes (Death)
  Sender: FDA-Public Use
  Company Number: US-MYLANLABS-2011S1022457

PATIENT
  Age: 69 Year
  Sex: Female

DRUGS (6)
  1. AZITHROMYCIN [Concomitant]
     Indication: PNEUMONIA
     Route: 048
  2. CEFTRIAXONE [Concomitant]
     Indication: PNEUMONIA
     Route: 042
  3. AMIODARONE HCL [Interacting]
     Route: 041
  4. AMIODARONE HCL [Suspect]
     Indication: ATRIAL FIBRILLATION
     Dosage: THEN IV INFUSION
     Route: 048
  5. COLCHICINE [Interacting]
     Indication: PERICARDITIS
     Route: 048
  6. AMOXICILLIN AND CLAVULANATE POTASSIUM [Concomitant]
     Indication: SINUSITIS
     Route: 065

REACTIONS (9)
  - CARDIAC ARREST [None]
  - VOMITING [None]
  - DRUG INTERACTION [None]
  - DIARRHOEA [None]
  - LEUKOPENIA [None]
  - TOXICITY TO VARIOUS AGENTS [None]
  - CARDIOGENIC SHOCK [None]
  - NAUSEA [None]
  - MULTI-ORGAN FAILURE [None]
